FAERS Safety Report 5239257-6 (Version None)
Quarter: 2007Q1

REPORT INFORMATION
  Report Type: 
  Country: None (occurrence: None)
  Receive Date: 20061208
  Receipt Date: 20050907
  Transmission Date: 20070707
  Serious: Yes (Other)
  Sender: FDA-Public Use
  Company Number: 2005UW13265

PATIENT
  Age: 64 Year
  Sex: Male
  Weight: 87.9 kg

DRUGS (4)
  1. CRESTOR [Suspect]
     Indication: HYPERCHOLESTEROLAEMIA
     Dosage: 5 MG DAILY PO
     Route: 048
     Dates: start: 20050810
  2. CRESTOR [Suspect]
     Indication: HYPERCHOLESTEROLAEMIA
     Dates: start: 20040101
  3. INDERAL [Concomitant]
  4. ZOLOFT [Concomitant]

REACTIONS (3)
  - BURNING SENSATION [None]
  - MUSCLE SPASMS [None]
  - MYALGIA [None]
